FAERS Safety Report 5727981-8 (Version None)
Quarter: 2008Q2

REPORT INFORMATION
  Report Type: 
  Country: None (occurrence: None)
  Receive Date: 20080505
  Receipt Date: 20080410
  Transmission Date: 20081010
  Serious: No
  Sender: FDA-Public Use
  Company Number: US-BOEHRINGER INGELHEIM GMBH, GERMANY-2008-BP-03689BP

PATIENT
  Sex: Female

DRUGS (5)
  1. SPIRIVA [Suspect]
     Route: 055
     Dates: start: 20050728
  2. ADVAIR HFA [Concomitant]
     Dates: start: 20050728
  3. VENTOLIN HFA [Concomitant]
     Dates: start: 20070510
  4. SINGULAIR [Concomitant]
     Route: 048
     Dates: start: 20001212
  5. PROVENTIL-HFA [Concomitant]
     Dates: start: 20070427

REACTIONS (1)
  - THERAPEUTIC RESPONSE DECREASED [None]
